FAERS Safety Report 24284081 (Version 1)
Quarter: 2024Q3

REPORT INFORMATION
  Report Type: Spontaneous
  Country: CN (occurrence: CN)
  Receive Date: 20240905
  Receipt Date: 20240905
  Transmission Date: 20241016
  Serious: Yes (Hospitalization)
  Sender: ROCHE
  Company Number: CN-ROCHE-10000072209

PATIENT
  Age: 70 Year
  Sex: Female
  Weight: 37 kg

DRUGS (6)
  1. OBINUTUZUMAB [Suspect]
     Active Substance: OBINUTUZUMAB
     Indication: Follicular lymphoma
     Route: 042
     Dates: start: 20240817, end: 20240817
  2. CYCLOPHOSPHAMIDE [Suspect]
     Active Substance: CYCLOPHOSPHAMIDE
     Indication: Follicular lymphoma
     Route: 042
     Dates: start: 20240818, end: 20240818
  3. DOXORUBICIN HYDROCHLORIDE [Suspect]
     Active Substance: DOXORUBICIN HYDROCHLORIDE
     Indication: Follicular lymphoma
     Route: 042
     Dates: start: 20240818, end: 20240818
  4. VINDESINE SULFATE [Suspect]
     Active Substance: VINDESINE SULFATE
     Indication: Follicular lymphoma
     Route: 042
     Dates: start: 20240818, end: 20240818
  5. ANF-RHO [Concomitant]
     Active Substance: ANF-RHO
  6. PREDNISONE ACETATE [Concomitant]
     Active Substance: PREDNISONE ACETATE
     Route: 048

REACTIONS (1)
  - Myelosuppression [Unknown]

NARRATIVE: CASE EVENT DATE: 20240825
